FAERS Safety Report 11278846 (Version 1)
Quarter: 2015Q3

REPORT INFORMATION
  Report Type: Report from Study
  Country: CA (occurrence: CA)
  Receive Date: 20150717
  Receipt Date: 20150717
  Transmission Date: 20151125
  Serious: Yes (Hospitalization, Other)
  Sender: FDA-Public Use
  Company Number: CA-JNJFOC-20150708084

PATIENT
  Sex: Female

DRUGS (1)
  1. REMICADE [Suspect]
     Active Substance: INFLIXIMAB
     Indication: CROHN^S DISEASE
     Route: 042

REACTIONS (46)
  - Seizure [Unknown]
  - Hepatic lesion [Unknown]
  - Memory impairment [Unknown]
  - Haemorrhage [Unknown]
  - Hospitalisation [Unknown]
  - Tooth disorder [Unknown]
  - Dyspnoea [Unknown]
  - Syncope [Unknown]
  - Myalgia [Unknown]
  - Mental status changes [Unknown]
  - Burning sensation [Unknown]
  - Bone pain [Unknown]
  - Vomiting [Unknown]
  - Pain in extremity [Unknown]
  - Head injury [Unknown]
  - Tooth loss [Unknown]
  - Headache [Unknown]
  - Rash [Unknown]
  - Oropharyngeal pain [Unknown]
  - Dizziness [Unknown]
  - Chest pain [Unknown]
  - Muscle twitching [Not Recovered/Not Resolved]
  - Arthralgia [Unknown]
  - Nausea [Unknown]
  - Cough [Unknown]
  - Chills [Unknown]
  - Loss of consciousness [Unknown]
  - Menorrhagia [Unknown]
  - Muscle spasms [Unknown]
  - Back pain [Unknown]
  - Urticaria [Unknown]
  - Pyrexia [Unknown]
  - Fall [Unknown]
  - Haematemesis [Unknown]
  - Bedridden [Unknown]
  - Dyskinesia [Unknown]
  - Thrombosis [Unknown]
  - Central nervous system lesion [Unknown]
  - Heart rate irregular [Unknown]
  - Pain [Unknown]
  - Paraesthesia [Unknown]
  - Fatigue [Unknown]
  - Hypokinesia [Unknown]
  - Hypoaesthesia [Unknown]
  - Crohn^s disease [Unknown]
  - Chest discomfort [Unknown]
